FAERS Safety Report 7038309-8 (Version None)
Quarter: 2010Q4

REPORT INFORMATION
  Report Type: 
  Country: None (occurrence: None)
  Receive Date: 20101011
  Receipt Date: 20100115
  Transmission Date: 20110411
  Serious: No
  Sender: FDA-Public Use
  Company Number: US-PFIZER INC-2010006966

PATIENT
  Sex: Male

DRUGS (8)
  1. NEURONTIN [Suspect]
     Indication: SCIATICA
     Dosage: 300 MG, 1X/DAY
     Route: 048
     Dates: start: 20100105
  2. NEURONTIN [Suspect]
     Dosage: UNK MG, UNK
  3. NEURONTIN [Suspect]
     Dosage: UNK
  4. IBUPROFEN [Concomitant]
     Dosage: 600 MG, 3X/DAY
  5. VICODIN [Concomitant]
     Dosage: 5/500MG; 3X/DAY
  6. VITAMIN D3 [Concomitant]
     Dosage: 400 MG, 1X/DAY
  7. SIMVASTATIN [Concomitant]
     Dosage: 200 MG, 1X/DAY
  8. ACETYLSALICYLIC ACID [Concomitant]
     Dosage: 81 MG, 1X/DAY

REACTIONS (1)
  - DRUG INEFFECTIVE FOR UNAPPROVED INDICATION [None]
